FAERS Safety Report 8163681 (Version 8)
Quarter: 2012Q4

REPORT INFORMATION
  Report Type: 
  Country: FR (occurrence: FR)
  Receive Date: 20110930
  Receipt Date: 20120917
  Transmission Date: 20130627
  Serious: Yes (Hospitalization, Disabling)
  Sender: FDA-Public Use
  Company Number: FR-JNJFOC-20110909705

PATIENT
  Age: 74 Year
  Sex: Female

DRUGS (11)
  1. REMICADE [Suspect]
     Indication: ENTEROCOLITIS HAEMORRHAGIC
     Dosage: second infusion
     Route: 042
     Dates: start: 20080429
  2. REMICADE [Suspect]
     Indication: ENTEROCOLITIS HAEMORRHAGIC
     Route: 042
     Dates: start: 20080415
  3. REMICADE [Suspect]
     Indication: COLITIS ULCERATIVE
     Dosage: second infusion
     Route: 042
     Dates: start: 20080429
  4. REMICADE [Suspect]
     Indication: COLITIS ULCERATIVE
     Route: 042
     Dates: start: 20080415
  5. IMUREL [Suspect]
     Indication: ENTEROCOLITIS HAEMORRHAGIC
     Dosage: 3 spoons per os
     Route: 054
     Dates: start: 20080415
  6. IMUREL [Suspect]
     Indication: ENTEROCOLITIS HAEMORRHAGIC
     Route: 054
     Dates: start: 20080429
  7. IMUREL [Suspect]
     Indication: ENTEROCOLITIS HAEMORRHAGIC
     Route: 054
     Dates: start: 20080505
  8. HUMIRA [Suspect]
     Indication: ENTEROCOLITIS HAEMORRHAGIC
     Route: 065
     Dates: start: 20080528
  9. FLAGYL [Suspect]
     Indication: CLOSTRIDIAL INFECTION
     Route: 042
     Dates: start: 200805
  10. FLAGYL [Suspect]
     Indication: CLOSTRIDIAL INFECTION
     Route: 042
     Dates: start: 1985
  11. FLAGYL [Suspect]
     Indication: CLOSTRIDIAL INFECTION
     Route: 042
     Dates: end: 20080602

REACTIONS (6)
  - Pancreatitis [Recovered/Resolved]
  - Diplopia [Unknown]
  - Treatment failure [Unknown]
  - Clostridium difficile infection [Recovered/Resolved]
  - Back pain [Unknown]
  - Polyneuropathy [Recovering/Resolving]
